FAERS Safety Report 7410674-9 (Version None)
Quarter: 2011Q1

REPORT INFORMATION
  Report Type: 
  Country: None (occurrence: None)
  Receive Date: 20110302
  Receipt Date: 20110119
  Transmission Date: 20110831
  Serious: No
  Sender: FDA-Public Use
  Company Number: 025848

PATIENT
  Sex: Female
  Weight: 53.5 kg

DRUGS (5)
  1. EFFEXOR [Concomitant]
  2. CIMZIA [Suspect]
     Indication: CROHN'S DISEASE
     Dosage: 2 SHOTS IN THE HIP OR ABDOMEN EACH TIME SUBCUTANEOUS
     Route: 058
     Dates: start: 20101109
  3. SYNTHROID [Concomitant]
  4. AMBIEN [Concomitant]
  5. IMURAN [Concomitant]

REACTIONS (2)
  - NASOPHARYNGITIS [None]
  - MALAISE [None]
